FAERS Safety Report 9868262 (Version 1)
Quarter: 2014Q1

REPORT INFORMATION
  Report Type: Spontaneous
  Country: US (occurrence: US)
  Receive Date: 20140204
  Receipt Date: 20140204
  Transmission Date: 20141002
  Serious: Yes (Other)
  Sender: FDA-Public Use
  Company Number: US-TEVA-459977USA

PATIENT
  Age: 32 Year
  Sex: Female
  Weight: 66.74 kg

DRUGS (1)
  1. FENTORA [Suspect]
     Indication: BREAKTHROUGH PAIN
     Route: 002
     Dates: start: 201011

REACTIONS (20)
  - Gun shot wound [Unknown]
  - Spinal fracture [Unknown]
  - Spinal cord injury [Unknown]
  - Paralysis [Not Recovered/Not Resolved]
  - Osteonecrosis [Unknown]
  - Thrombosis [Recovered/Resolved]
  - Adverse event [Unknown]
  - Osteoarthritis [Unknown]
  - Gastrointestinal stoma complication [Recovered/Resolved]
  - Migraine [Recovered/Resolved]
  - Vomiting [Recovered/Resolved]
  - Infection [Not Recovered/Not Resolved]
  - Pyrexia [Not Recovered/Not Resolved]
  - Pain [Not Recovered/Not Resolved]
  - Incision site complication [Not Recovered/Not Resolved]
  - Nausea [Recovered/Resolved]
  - Therapeutic response unexpected [Unknown]
  - Faecal volume decreased [Unknown]
  - Abnormal faeces [Unknown]
  - Obstruction [Recovered/Resolved]
